FAERS Safety Report 6862102-X (Version None)
Quarter: 2010Q3

REPORT INFORMATION
  Report Type: 
  Country: None (occurrence: None)
  Receive Date: 20100721
  Receipt Date: 20100708
  Transmission Date: 20110219
  Serious: No
  Sender: FDA-Public Use
  Company Number: JP-ELI_LILLY_AND_COMPANY-JP201007001843

PATIENT
  Age: 50 Year
  Sex: Male

DRUGS (3)
  1. ZYPREXA [Suspect]
     Indication: SCHIZOPHRENIA
     Dosage: 20 MG, DAILY (1/D)
     Route: 048
     Dates: start: 20100401
  2. ARIPIPRAZOLE [Concomitant]
     Route: 065
  3. RISPERIDONE [Concomitant]
     Route: 065

REACTIONS (1)
  - WHITE BLOOD CELL COUNT DECREASED [None]
